FAERS Safety Report 13385114 (Version 1)
Quarter: 2017Q1

REPORT INFORMATION
  Report Type: Spontaneous
  Country: US (occurrence: US)
  Receive Date: 20170330
  Receipt Date: 20170330
  Transmission Date: 20170429
  Serious: Yes (Other)
  Sender: FDA-Public Use
  Company Number: None

PATIENT
  Age: 44 Year
  Sex: Female
  Weight: 72 kg

DRUGS (4)
  1. AMOX/K CLAV 500-125 [Suspect]
     Active Substance: AMOXICILLIN\CLAVULANATE POTASSIUM
     Indication: PRURITUS
     Dosage: ?          QUANTITY:1 TABLET(S);?
     Route: 048
     Dates: start: 20170324, end: 20170328
  2. AMOX/K CLAV 500-125 [Suspect]
     Active Substance: AMOXICILLIN\CLAVULANATE POTASSIUM
     Indication: RHINORRHOEA
     Dosage: ?          QUANTITY:1 TABLET(S);?
     Route: 048
     Dates: start: 20170324, end: 20170328
  3. NAPROXEN. [Concomitant]
     Active Substance: NAPROXEN
  4. ALPRAZOLAM. [Concomitant]
     Active Substance: ALPRAZOLAM

REACTIONS (1)
  - Body mass index decreased [None]

NARRATIVE: CASE EVENT DATE: 20170325
